FAERS Safety Report 5004638-2 (Version None)
Quarter: 2006Q2

REPORT INFORMATION
  Report Type: 
  Country: None (occurrence: None)
  Receive Date: 20060512
  Receipt Date: 20060504
  Transmission Date: 20061013
  Serious: Yes (Hospitalization, Disabling)
  Sender: FDA-Public Use
  Company Number: 2006060080

PATIENT
  Sex: Male

DRUGS (1)
  1. ZELDOX (CAPSULES) (ZIPRASIDONE) [Suspect]
     Indication: MENTAL DISORDER
     Dosage: 80 MG (40 MG, 2 IN 1 D), ORAL
     Route: 048
     Dates: start: 20050101, end: 20060401

REACTIONS (7)
  - CYST [None]
  - GASTRITIS [None]
  - GINGIVAL BLEEDING [None]
  - GINGIVAL INFECTION [None]
  - NEUROPATHY PERIPHERAL [None]
  - PURULENCE [None]
  - TOOTH EXTRACTION [None]
